FAERS Safety Report 4629858-8 (Version None)
Quarter: 2005Q2

REPORT INFORMATION
  Report Type: 
  Country: None (occurrence: None)
  Receive Date: 20050407
  Receipt Date: 20050323
  Transmission Date: 20051028
  Serious: Yes (Life-Threatening, Hospitalization)
  Sender: FDA-Public Use
  Company Number: 200510827GDS

PATIENT
  Age: 78 Year
  Sex: Female

DRUGS (6)
  1. NAPROXEN SODIUM [Suspect]
     Dosage: 150 MG, TOTAL DAILY, ORAL
     Route: 048
     Dates: start: 20050126
  2. NOOTROPYL (PIRACETAM) [Suspect]
     Dosage: 2400 MG, TOTAL DAILY, ORAL
     Route: 048
     Dates: end: 20050127
  3. ALLOPURINOL [Suspect]
     Dosage: 200 MG, TOTAL DAILY, ORAL
     Route: 048
     Dates: end: 20050127
  4. FLECAINIDE ACETATE [Suspect]
     Dosage: 100 MG TOTAL DAILY, ORAL
     Route: 048
     Dates: end: 20050127
  5. DIGOXIN [Suspect]
     Dosage: QD, ORAL
     Route: 048
     Dates: end: 20050127
  6. PRETERAX [Suspect]
     Dosage: QD, ORAL
     Route: 048
     Dates: end: 20050127

REACTIONS (7)
  - BLOOD CREATININE INCREASED [None]
  - CARDIAC ARREST [None]
  - LOSS OF CONSCIOUSNESS [None]
  - SINUS BRADYCARDIA [None]
  - TORSADE DE POINTES [None]
  - VENTRICULAR EXTRASYSTOLES [None]
  - VENTRICULAR HYPERTROPHY [None]
